FAERS Safety Report 8805924 (Version 2)
Quarter: 2013Q2

REPORT INFORMATION
  Report Type: Spontaneous
  Country: GB (occurrence: None)
  Receive Date: 20120918
  Receipt Date: 20130517
  Transmission Date: 20140414
  Serious: Yes (Other)
  Sender: FDA-Public Use
  Company Number: GER/UKI/12/0025813

PATIENT
  Age: 53 Year
  Sex: Male
  Weight: 90 kg

DRUGS (1)
  1. OMEPRAZOLE [Suspect]
     Indication: PRODUCT USED FOR UNKNOWN INDICATION
     Route: 048

REACTIONS (24)
  - Anaemia [None]
  - Dyspnoea [None]
  - Cellulitis [None]
  - Confusional state [None]
  - Depression [None]
  - Dry eye [None]
  - Dry mouth [None]
  - Fall [None]
  - Pain [None]
  - Hyperchlorhydria [None]
  - Intestinal haemorrhage [None]
  - Mouth haemorrhage [None]
  - Muscular weakness [None]
  - Skin burning sensation [None]
  - Local swelling [None]
  - Tremor [None]
  - Angiopathy [None]
  - Visual acuity reduced [None]
  - Photopsia [None]
  - Vitamin D deficiency [None]
  - Vitreous detachment [None]
  - Weight decreased [None]
  - Gynaecomastia [None]
  - Nausea [None]
